FAERS Safety Report 8963939 (Version 1)
Quarter: 2012Q4

REPORT INFORMATION
  Report Type: 
  Country: US (occurrence: US)
  Receive Date: 20121213
  Receipt Date: 20121213
  Transmission Date: 20130627
  Serious: Yes (Other)
  Sender: FDA-Public Use
  Company Number: US-ASTRAZENECA-2012SE91216

PATIENT
  Age: 6 Year
  Sex: Female
  Weight: 27.2 kg

DRUGS (5)
  1. SYMBICORT PMDI [Suspect]
     Indication: ASTHMA
     Dosage: 80/4.5 MCG
     Route: 055
     Dates: start: 20120830
  2. SYMBICORT PMDI [Suspect]
     Indication: ASTHMA
     Dosage: 160/4.5 MCG TWO PUFFS DAILY
     Route: 055
     Dates: start: 201210
  3. PULMICORT RESPULES [Suspect]
     Indication: PNEUMONIA
     Route: 055
  4. ALBUTEROL [Concomitant]
     Indication: ASTHMA
     Dosage: DAILY
  5. ALBUTEROL [Concomitant]
     Indication: ASTHMA
     Dosage: AS REQUIRED

REACTIONS (6)
  - Pneumonia [Unknown]
  - Rash [Unknown]
  - Rash [Unknown]
  - Off label use [Unknown]
  - Off label use [Unknown]
  - Off label use [Unknown]
